FAERS Safety Report 18564141 (Version 1)
Quarter: 2020Q4

REPORT INFORMATION
  Report Type: Other
  Country: JP (occurrence: JP)
  Receive Date: 20201201
  Receipt Date: 20201201
  Transmission Date: 20210114
  Serious: Yes (Death, Other)
  Sender: FDA-Public Use
  Company Number: JP-ROCHE-2721985

PATIENT

DRUGS (3)
  1. NIVOLUMAB [Suspect]
     Active Substance: NIVOLUMAB
     Indication: NON-SMALL CELL LUNG CANCER
     Route: 065
  2. ATEZOLIZUMAB. [Suspect]
     Active Substance: ATEZOLIZUMAB
     Indication: NON-SMALL CELL LUNG CANCER
     Route: 065
  3. PEMBROLIZUMAB. [Suspect]
     Active Substance: PEMBROLIZUMAB
     Indication: NON-SMALL CELL LUNG CANCER
     Route: 065

REACTIONS (21)
  - Cholangitis [Unknown]
  - Eosinophilic fasciitis [Unknown]
  - Arthritis [Unknown]
  - Rash [Unknown]
  - Adrenocorticotropic hormone deficiency [Unknown]
  - Uveitis [Unknown]
  - Rhinitis allergic [Unknown]
  - Pyrexia [Unknown]
  - Colitis [Unknown]
  - Nephritis [Unknown]
  - Infusion related reaction [Unknown]
  - Latent tuberculosis [Unknown]
  - Myocarditis [Unknown]
  - Pneumonia [Unknown]
  - Thyroid disorder [Unknown]
  - Bile duct stone [Unknown]
  - Pneumonitis [Fatal]
  - Infectious pleural effusion [Unknown]
  - Asthma [Unknown]
  - Diarrhoea [Unknown]
  - Hepatitis [Unknown]
